FAERS Safety Report 9468540 (Version 2)
Quarter: 2013Q3

REPORT INFORMATION
  Report Type: Spontaneous
  Country: US (occurrence: US)
  Receive Date: 20130821
  Receipt Date: 20130926
  Transmission Date: 20140515
  Serious: No
  Sender: FDA-Public Use
  Company Number: US-TEVA-427478USA

PATIENT
  Age: 38 Year
  Sex: Female
  Weight: 59.02 kg

DRUGS (6)
  1. PARAGARD 380A [Suspect]
     Indication: CONTRACEPTION
     Route: 015
     Dates: start: 201302
  2. SINGULAIR [Concomitant]
     Indication: ASTHMA
     Dosage: 10 MILLIGRAM DAILY;
  3. CLARITIN [Concomitant]
     Indication: HYPERSENSITIVITY
     Dosage: 10 MILLIGRAM DAILY;
  4. ZOLOFT [Concomitant]
     Indication: DEPRESSION
     Dosage: 50 MILLIGRAM DAILY;
  5. COMBIVAN [Concomitant]
     Indication: GLAUCOMA
  6. FLUCONAZOL [Concomitant]
     Indication: FUNGAL INFECTION

REACTIONS (3)
  - Menorrhagia [Unknown]
  - Vaginal discharge [Unknown]
  - Fungal infection [Unknown]
